FAERS Safety Report 23453445 (Version 4)
Quarter: 2024Q1

REPORT INFORMATION
  Report Type: Spontaneous
  Country: JP (occurrence: JP)
  Receive Date: 20240129
  Receipt Date: 20240329
  Transmission Date: 20240410
  Serious: Yes (Other)
  Sender: FDA-Public Use
  Company Number: JP-MSD-2401JPN005097J

PATIENT
  Age: 81 Year
  Sex: Female
  Weight: 43 kg

DRUGS (14)
  1. BELSOMRA [Interacting]
     Active Substance: SUVOREXANT
     Indication: Initial insomnia
     Dosage: 10 MILLIGRAM
     Route: 048
     Dates: start: 20220511, end: 20230708
  2. BROTIZOLAM [Interacting]
     Active Substance: BROTIZOLAM
     Indication: Initial insomnia
     Dosage: 0.25 MILLIGRAM, QD
     Route: 048
     Dates: start: 20220325
  3. BROTIZOLAM [Interacting]
     Active Substance: BROTIZOLAM
     Indication: Insomnia
  4. NALFURAFINE HYDROCHLORIDE [Interacting]
     Active Substance: NALFURAFINE HYDROCHLORIDE
     Indication: Pruritus
     Dosage: 2.5 MILLIGRAM, QD
     Route: 048
     Dates: start: 20230608, end: 20230614
  5. BILANOA OD [Concomitant]
     Indication: Pruritus
     Dosage: 20 MILLIGRAM, QD
     Route: 048
     Dates: start: 20210205
  6. ASPIRIN [Concomitant]
     Active Substance: ASPIRIN
     Indication: Cardiac failure chronic
     Dosage: 100 MILLIGRAM, QD
     Route: 048
  7. NEXIUM [Concomitant]
     Active Substance: ESOMEPRAZOLE MAGNESIUM
     Indication: Prophylaxis against gastrointestinal ulcer
     Dosage: 10 MILLIGRAM, QD
     Route: 048
  8. LEVOTHYROXINE SODIUM [Concomitant]
     Active Substance: LEVOTHYROXINE SODIUM
     Indication: Hypothyroidism
     Dosage: 50 MICROGRAM, QD
     Route: 048
  9. CLOPIDOGREL BISULFATE [Concomitant]
     Active Substance: CLOPIDOGREL BISULFATE
     Indication: Cardiac failure chronic
     Dosage: 75 MILLIGRAM, QD
     Route: 048
  10. ALFAROL [Concomitant]
     Active Substance: ALFACALCIDOL
     Indication: Chronic kidney disease
     Dosage: 0.5 MICROGRAM, QD
     Route: 048
  11. AMLODIPINE BESYLATE [Concomitant]
     Active Substance: AMLODIPINE BESYLATE
     Indication: Hypertension
     Dosage: 5 MILLIGRAM, QD
     Route: 048
  12. EVOCALCET [Concomitant]
     Active Substance: EVOCALCET
     Indication: Chronic kidney disease
     Dosage: 0.5 MILLIGRAM, QD
     Route: 048
  13. CALCIUM CARBONATE [Concomitant]
     Active Substance: CALCIUM CARBONATE
     Indication: Hyperphosphataemia
     Dosage: 1500 MILLIGRAM, TID
     Route: 048
  14. BERAPROST SODIUM [Concomitant]
     Active Substance: BERAPROST SODIUM
     Indication: Cardiac failure chronic
     Dosage: 20 MICROGRAM, TID
     Route: 048

REACTIONS (7)
  - Delirium [Recovering/Resolving]
  - Drug interaction [Recovering/Resolving]
  - Constipation [Unknown]
  - Pain [Unknown]
  - Pruritus [Unknown]
  - Incorrect dosage administered [Unknown]
  - Product use issue [Unknown]

NARRATIVE: CASE EVENT DATE: 20220511
